FAERS Safety Report 17016030 (Version 1)
Quarter: 2019Q4

REPORT INFORMATION
  Report Type: Spontaneous
  Country: US (occurrence: US)
  Receive Date: 20191003
  Receipt Date: 20191003
  Transmission Date: 20200122
  Serious: Yes (Other)
  Sender: FDA-Public Use
  Company Number: None

PATIENT
  Age: 78 Year
  Sex: Male
  Weight: 67.13 kg

DRUGS (4)
  1. ATORVATSTATIN [Concomitant]
  2. VITAMIN ALL [Concomitant]
  3. QUINIPRIL [Concomitant]
  4. QUINAPRIL 20MG TABLETS [Suspect]
     Active Substance: QUINAPRIL
     Indication: HYPERTENSION
     Dosage: ?          QUANTITY:20 MG MILLIGRAM(S);?
     Route: 048
     Dates: start: 2019, end: 20190917

REACTIONS (1)
  - Blood pressure increased [None]
